FAERS Safety Report 7770876-9 (Version None)
Quarter: 2011Q3

REPORT INFORMATION
  Report Type: 
  Country: None (occurrence: None)
  Receive Date: 20110922
  Receipt Date: 20100811
  Transmission Date: 20111222
  Serious: Yes (Other)
  Sender: FDA-Public Use
  Company Number: US-ASTRAZENECA-2007UW25204

PATIENT
  Age: 45 Year
  Sex: Male
  Weight: 97.5 kg

DRUGS (18)
  1. SEROQUEL [Suspect]
     Indication: BIPOLAR DISORDER
     Dosage: 200 MG TO 500 MG
     Route: 048
     Dates: start: 20040101
  2. SEROQUEL [Suspect]
     Route: 048
     Dates: start: 20051230
  3. SEROQUEL [Suspect]
     Route: 048
     Dates: start: 20100401
  4. SEROQUEL [Suspect]
     Dosage: 200-400 MG
     Route: 048
     Dates: start: 20030901, end: 20091101
  5. LIPITOR [Concomitant]
     Dates: start: 20051230
  6. SEROQUEL [Suspect]
     Route: 048
     Dates: start: 20071203
  7. SEROQUEL [Suspect]
     Route: 048
     Dates: start: 20071203
  8. SEROQUEL [Suspect]
     Indication: ANXIETY
     Dosage: 200 MG TO 500 MG
     Route: 048
     Dates: start: 20040101
  9. SEROQUEL [Suspect]
     Dosage: 200-400 MG
     Route: 048
     Dates: start: 20030901, end: 20091101
  10. DEPAKOTE ER [Concomitant]
     Dates: start: 20051230
  11. SEROQUEL [Suspect]
     Route: 048
     Dates: start: 20071203
  12. SEROQUEL [Suspect]
     Dosage: 200-400 MG
     Route: 048
     Dates: start: 20030901, end: 20091101
  13. SEROQUEL [Suspect]
     Route: 048
     Dates: start: 20100401
  14. SEROQUEL [Suspect]
     Indication: DEPRESSION
     Dosage: 200 MG TO 500 MG
     Route: 048
     Dates: start: 20040101
  15. SEROQUEL [Suspect]
     Route: 048
     Dates: start: 20051230
  16. DIAZEPAM [Concomitant]
     Dates: start: 20060811
  17. SEROQUEL [Suspect]
     Route: 048
     Dates: start: 20100401
  18. SEROQUEL [Suspect]
     Route: 048
     Dates: start: 20051230

REACTIONS (10)
  - DIABETIC COMPLICATION [None]
  - TYPE 2 DIABETES MELLITUS [None]
  - BLOOD TRIGLYCERIDES INCREASED [None]
  - CHRONIC OBSTRUCTIVE PULMONARY DISEASE [None]
  - ROAD TRAFFIC ACCIDENT [None]
  - SLEEP DISORDER [None]
  - HYPERLIPIDAEMIA [None]
  - BLOOD CHOLESTEROL INCREASED [None]
  - SUICIDE ATTEMPT [None]
  - EMPHYSEMA [None]
